FAERS Safety Report 8488868-3 (Version None)
Quarter: 2012Q3

REPORT INFORMATION
  Report Type: 
  Country: None (occurrence: None)
  Receive Date: 20120705
  Receipt Date: 20120623
  Transmission Date: 20120928
  Serious: Yes (Life-Threatening, Hospitalization, Disabling)
  Sender: FDA-Public Use
  Company Number: US-ELI_LILLY_AND_COMPANY-US201206007682

PATIENT
  Sex: Male
  Weight: 64.671 kg

DRUGS (17)
  1. ONDANSETRON [Concomitant]
     Dosage: 8 MG, OTHER
  2. CARBOPLATIN [Suspect]
     Indication: NON-SMALL CELL LUNG CANCER
     Dosage: UNK, OTHER
     Dates: start: 20120604, end: 20120604
  3. LEVAQUIN [Concomitant]
     Indication: PROPHYLAXIS
     Dosage: UNK
     Dates: start: 20120618
  4. GEMCITABINE HYDROCHLORIDE [Suspect]
     Dosage: 500 MG/M2, OTHER
     Route: 042
  5. PRILOSEC [Concomitant]
     Indication: PROPHYLAXIS
     Dosage: 20 MG, QD
     Route: 048
     Dates: start: 20120604, end: 20120621
  6. ROXANOL [Concomitant]
     Indication: OROPHARYNGEAL PAIN
     Dosage: 0.25 ML, OTHER
     Route: 048
     Dates: start: 20120618
  7. PROMETHAZINE [Concomitant]
     Dosage: 25 MG, OTHER
     Route: 048
  8. RAMUCIRUMAB (1121B) (LY3009806) [Suspect]
     Indication: NON-SMALL CELL LUNG CANCER
     Dosage: 10 MG/KG, OTHER
     Route: 042
     Dates: start: 20120604
  9. GEMCITABINE HYDROCHLORIDE [Suspect]
     Indication: NON-SMALL CELL LUNG CANCER
     Dosage: 1000 MG/M2, OTHER
     Route: 042
     Dates: start: 20120604, end: 20120611
  10. ZOMETA [Concomitant]
     Indication: NON-SMALL CELL LUNG CANCER
     Dosage: 4 MG, MONTHLY (1/M)
     Route: 042
     Dates: start: 20120611
  11. HYDROCODONE BITARTRATE [Concomitant]
     Indication: PAIN
     Dosage: UNK UNK, OTHER
     Dates: start: 20120530
  12. WARFARIN SODIUM [Concomitant]
     Indication: PROPHYLAXIS
     Dosage: UNK
     Dates: start: 20120522, end: 20120621
  13. CARBOPLATIN [Suspect]
     Dosage: 3 DF, OTHER
  14. METHADON HCL TAB [Concomitant]
     Indication: PAIN
     Dosage: 2.5 MG, EVERY 8 HRS
     Dates: start: 20120530, end: 20120621
  15. PLATELETS [Concomitant]
     Indication: THROMBOCYTOPENIA
     Dosage: UNK
     Dates: start: 20120618, end: 20120618
  16. NEUPOGEN [Concomitant]
     Indication: NEUTROPENIA
     Dosage: 480 UG, QD
     Route: 058
     Dates: start: 20120618
  17. PROMETHAZINE [Concomitant]
     Dosage: 225 MG, OTHER
     Route: 054

REACTIONS (3)
  - NEUTROPENIA [None]
  - OROPHARYNGEAL PAIN [None]
  - RADIATION MUCOSITIS [None]
